FAERS Safety Report 18420439 (Version 2)
Quarter: 2020Q4

REPORT INFORMATION
  Report Type: Spontaneous
  Country: BR (occurrence: BR)
  Receive Date: 20201023
  Receipt Date: 20201203
  Transmission Date: 20210114
  Serious: Yes (Other)
  Sender: FDA-Public Use
  Company Number: NVSC2020BR271392

PATIENT
  Sex: Male

DRUGS (1)
  1. CATAFLAMPRO [Suspect]
     Active Substance: DICLOFENAC DIETHYLAMINE
     Indication: ARTHRALGIA
     Dosage: 150 MG, BID
     Route: 065
     Dates: start: 20200907, end: 20200924

REACTIONS (5)
  - Rash macular [Recovering/Resolving]
  - Application site discolouration [Unknown]
  - Drug hypersensitivity [Recovered/Resolved]
  - Application site pruritus [Unknown]
  - Application site erythema [Recovering/Resolving]

NARRATIVE: CASE EVENT DATE: 202009
